FAERS Safety Report 12679922 (Version 3)
Quarter: 2016Q4

REPORT INFORMATION
  Report Type: Spontaneous
  Country: US (occurrence: US)
  Receive Date: 20160824
  Receipt Date: 20161017
  Transmission Date: 20170207
  Serious: No
  Sender: FDA-Public Use
  Company Number: US-009507513-1608USA010749

PATIENT
  Age: 33 Year
  Sex: Male

DRUGS (1)
  1. STERILE DILUENT [Suspect]
     Active Substance: WATER
     Dosage: 0.1 ML
     Route: 023
     Dates: start: 20160819

REACTIONS (1)
  - Injection site pain [Recovered/Resolved]

NARRATIVE: CASE EVENT DATE: 20160819
